FAERS Safety Report 8926371 (Version 1)
Quarter: 2012Q4

REPORT INFORMATION
  Report Type: 
  Country: CH (occurrence: CH)
  Receive Date: 20121127
  Receipt Date: 20121127
  Transmission Date: 20130627
  Serious: Yes (Life-Threatening, Hospitalization)
  Sender: FDA-Public Use
  Company Number: CH-BRISTOL-MYERS SQUIBB COMPANY-17137803

PATIENT
  Age: 52 Year
  Sex: Female

DRUGS (7)
  1. REYATAZ [Suspect]
     Route: 048
  2. NORVIR [Suspect]
     Route: 048
  3. VIREAD [Suspect]
     Route: 048
     Dates: end: 20120821
  4. LAMIVUDINE [Suspect]
     Route: 048
     Dates: end: 20120821
  5. KETALGIN NOS [Concomitant]
     Route: 048
  6. ZANTIC [Concomitant]
     Route: 048
  7. MOTILIUM [Concomitant]
     Route: 048

REACTIONS (3)
  - Septic shock [Recovered/Resolved]
  - Nephrolithiasis [Recovered/Resolved]
  - Cholelithiasis [Recovering/Resolving]
